FAERS Safety Report 8227967-8 (Version None)
Quarter: 2012Q1

REPORT INFORMATION
  Report Type: 
  Country: None (occurrence: None)
  Receive Date: 20120322
  Receipt Date: 20120315
  Transmission Date: 20120608
  Serious: Yes (Other)
  Sender: FDA-Public Use
  Company Number: PHHY2012BR023399

PATIENT
  Age: 59 Year
  Sex: Female

DRUGS (7)
  1. EXFORGE [Concomitant]
     Indication: HYPERTENSION
     Dosage: 1 DF, QD; MORNING
     Route: 048
  2. ASPIRIN [Concomitant]
  3. SIMVASTATIN [Suspect]
     Dosage: 20 MG, UNK
     Route: 048
  4. PROCIMAX [Concomitant]
     Dosage: UNK MG, UNK
  5. PANTOPRAZOLE [Suspect]
     Dosage: 40 MG, UNK
     Route: 048
  6. DIGEPLUS [Concomitant]
  7. FLOXOCIP [Concomitant]

REACTIONS (3)
  - BLOOD PRESSURE INCREASED [None]
  - HEART RATE INCREASED [None]
  - ANXIETY [None]
